FAERS Safety Report 11405455 (Version 1)
Quarter: 2015Q3

REPORT INFORMATION
  Report Type: Spontaneous
  Country: RU (occurrence: RU)
  Receive Date: 20150821
  Receipt Date: 20150821
  Transmission Date: 20151125
  Serious: Yes (Life-Threatening, Hospitalization)
  Sender: FDA-Public Use
  Company Number: RU-BAYER-2015-405040

PATIENT
  Age: 50 Year
  Sex: Female

DRUGS (1)
  1. ULTRAVIST [Suspect]
     Active Substance: IOPROMIDE
     Route: 042

REACTIONS (4)
  - Blood pressure decreased [Recovered/Resolved]
  - Anaphylactoid reaction [Recovered/Resolved]
  - Circulatory collapse [Recovered/Resolved]
  - Seizure [Recovered/Resolved]
